FAERS Safety Report 21382844 (Version 2)
Quarter: 2022Q4

REPORT INFORMATION
  Report Type: Spontaneous
  Country: US (occurrence: US)
  Receive Date: 20220927
  Receipt Date: 20221102
  Transmission Date: 20230113
  Serious: No
  Sender: FDA-Public Use
  Company Number: US-SA-SAC20220922000318

PATIENT
  Age: 15 Year
  Sex: Female

DRUGS (8)
  1. DUPIXENT [Suspect]
     Active Substance: DUPILUMAB
     Indication: Psoriasis
     Dosage: 200 MG, QOW
     Route: 058
     Dates: start: 20211207
  2. DUPIXENT [Suspect]
     Active Substance: DUPILUMAB
     Indication: Dermatitis atopic
     Dosage: 300 MG, QOW
     Route: 058
     Dates: start: 20220828
  3. VITAMINS NOS [Concomitant]
     Active Substance: VITAMINS
     Indication: Dermatitis atopic
     Dosage: DAILY
     Route: 048
  4. BETAMETHASONE [Concomitant]
     Active Substance: BETAMETHASONE
     Indication: Dermatitis atopic
     Route: 061
     Dates: start: 20220121
  5. KEFLEX [Concomitant]
     Active Substance: CEPHALEXIN
     Indication: Dermatitis atopic
     Dosage: UNK
     Route: 048
     Dates: start: 20201023, end: 20201101
  6. ZYRTEC [Concomitant]
     Active Substance: CETIRIZINE HYDROCHLORIDE
     Indication: Dermatitis atopic
     Dosage: UNK
     Route: 048
  7. ALPRAZOLAM [Concomitant]
     Active Substance: ALPRAZOLAM
     Indication: Dermatitis atopic
     Dosage: UNK
     Route: 048
  8. FLONASE [Concomitant]
     Active Substance: FLUTICASONE PROPIONATE
     Indication: Dermatitis atopic
     Route: 048

REACTIONS (6)
  - Rash erythematous [Unknown]
  - Pruritus [Unknown]
  - Skin burning sensation [Unknown]
  - Condition aggravated [Unknown]
  - Erythema [Unknown]
  - Product use in unapproved indication [Unknown]

NARRATIVE: CASE EVENT DATE: 20211207
